FAERS Safety Report 5298893-1 (Version None)
Quarter: 2007Q2

REPORT INFORMATION
  Report Type: 
  Country: None (occurrence: None)
  Receive Date: 20070412
  Receipt Date: 20070412
  Transmission Date: 20071010
  Serious: Yes (Other)
  Sender: FDA-Public Use
  Company Number: None

PATIENT
  Age: 31 Year
  Sex: Male
  Weight: 118.8424 kg

DRUGS (4)
  1. OLANZAPINE [Suspect]
     Indication: SCHIZOPHRENIA
     Dosage: 30 MG QHS PO
     Route: 048
     Dates: start: 20060517, end: 20061124
  2. HYDROXYZINE [Concomitant]
  3. ATORVASTATIN CALCIUM [Concomitant]
  4. DIVALPROEX SODIUM [Concomitant]

REACTIONS (1)
  - DIABETES MELLITUS [None]
